FAERS Safety Report 6942327-5 (Version None)
Quarter: 2010Q3

REPORT INFORMATION
  Report Type: 
  Country: None (occurrence: None)
  Receive Date: 20100826
  Receipt Date: 20100816
  Transmission Date: 20110219
  Serious: Yes (Hospitalization, Other)
  Sender: FDA-Public Use
  Company Number: US-BRISTOL-MYERS SQUIBB COMPANY-15248313

PATIENT
  Age: 24 Year
  Sex: Male

DRUGS (3)
  1. ABILIFY [Suspect]
  2. CLOZAPINE [Interacting]
     Dosage: 12.5MG,25MG,50MG,100MG
     Route: 048
  3. SEROQUEL [Interacting]
     Dates: end: 20100806

REACTIONS (4)
  - BLOOD PRESSURE INCREASED [None]
  - DRUG INTERACTION [None]
  - OXYGEN SATURATION DECREASED [None]
  - SEROTONIN SYNDROME [None]
